FAERS Safety Report 17486494 (Version 1)
Quarter: 2020Q1

REPORT INFORMATION
  Report Type: Spontaneous
  Country: DE (occurrence: DE)
  Receive Date: 20200303
  Receipt Date: 20200303
  Transmission Date: 20200409
  Serious: Yes (Other)
  Sender: FDA-Public Use
  Company Number: DE-AUROBINDO-AUR-APL-2019-107964

PATIENT
  Sex: Female
  Weight: 62 kg

DRUGS (2)
  1. LETROZOLE. [Suspect]
     Active Substance: LETROZOLE
     Indication: BREAST CANCER
     Dosage: FOR HALF A YEAR
     Route: 065
  2. KISQALI [Suspect]
     Active Substance: RIBOCICLIB
     Indication: BREAST CANCER
     Dosage: 600 MILLIGRAM, ONCE A DAY (FOR HALF A YEAR)
     Route: 065
     Dates: start: 2019

REACTIONS (2)
  - Alopecia [Not Recovered/Not Resolved]
  - Metastasis [Unknown]

NARRATIVE: CASE EVENT DATE: 201903
